FAERS Safety Report 21735560 (Version 1)
Quarter: 2022Q4

REPORT INFORMATION
  Report Type: Spontaneous
  Country: GB (occurrence: GB)
  Receive Date: 20221215
  Receipt Date: 20221215
  Transmission Date: 20230113
  Serious: Yes (Hospitalization, Other)
  Sender: FDA-Public Use
  Company Number: GB-MHRA-MED-202212071945316410-YBLFJ

PATIENT
  Sex: Female
  Weight: 63 kg

DRUGS (2)
  1. CITALOPRAM HYDROBROMIDE [Suspect]
     Active Substance: CITALOPRAM HYDROBROMIDE
     Indication: Mood swings
     Dosage: 10 MG, QD
     Dates: start: 20221004, end: 20221202
  2. GEDAREL [Concomitant]
     Indication: Contraception

REACTIONS (3)
  - Dystonia [Recovering/Resolving]
  - Serotonin syndrome [Recovering/Resolving]
  - Extrapyramidal disorder [Recovering/Resolving]

NARRATIVE: CASE EVENT DATE: 20221202
